FAERS Safety Report 14278821 (Version 2)
Quarter: 2018Q1

REPORT INFORMATION
  Report Type: Spontaneous
  Country: NL (occurrence: NL)
  Receive Date: 20171213
  Receipt Date: 20180104
  Transmission Date: 20180508
  Serious: Yes (Life-Threatening)
  Sender: FDA-Public Use
  Company Number: NL-ABBVIE-17K-114-2190826-00

PATIENT
  Age: 38 Year
  Sex: Female
  Weight: 64 kg

DRUGS (1)
  1. HUMIRA [Suspect]
     Active Substance: ADALIMUMAB
     Indication: RHEUMATOID ARTHRITIS
     Route: 058
     Dates: start: 20171001, end: 20171110

REACTIONS (5)
  - Suicidal ideation [Recovering/Resolving]
  - Psychotic disorder [Recovering/Resolving]
  - Personality change [Recovering/Resolving]
  - Fatigue [Recovering/Resolving]
  - Panic attack [Recovering/Resolving]

NARRATIVE: CASE EVENT DATE: 20171010
